FAERS Safety Report 9419838 (Version 6)
Quarter: 2013Q4

REPORT INFORMATION
  Report Type: Spontaneous
  Country: PT (occurrence: PT)
  Receive Date: 20130725
  Receipt Date: 20131212
  Transmission Date: 20140711
  Serious: Yes (Other)
  Sender: FDA-Public Use
  Company Number: PT-ROCHE-1252803

PATIENT
  Age: 3 Year
  Sex: Male
  Weight: 20 kg

DRUGS (6)
  1. CELLCEPT [Suspect]
     Indication: AUTOIMMUNE DISORDER
     Route: 048
     Dates: start: 20130719
  2. CELLCEPT [Suspect]
     Route: 048
  3. CELLCEPT [Suspect]
     Route: 048
  4. LEPICORTINOLO [Concomitant]
     Indication: AUTOIMMUNE DISORDER
     Dosage: DAILY
     Route: 048
     Dates: start: 2012
  5. VIGANTOL [Concomitant]
     Indication: AUTOIMMUNE DISORDER
     Dosage: 1 DROP/DAY
     Route: 048
     Dates: start: 2012
  6. OMEPRAZOLE [Concomitant]
     Indication: GASTRITIS PROPHYLAXIS
     Route: 048
     Dates: start: 2012

REACTIONS (2)
  - Oral discomfort [Recovering/Resolving]
  - Off label use [Unknown]
